FAERS Safety Report 4358178-4 (Version None)
Quarter: 2004Q2

REPORT INFORMATION
  Report Type: 
  Country: None (occurrence: None)
  Receive Date: 20040511
  Receipt Date: 20040429
  Transmission Date: 20050107
  Serious: Yes (Hospitalization)
  Sender: FDA-Public Use
  Company Number: 2004AP02532

PATIENT
  Age: 73 Year
  Sex: Female

DRUGS (2)
  1. IRESSA [Suspect]
     Indication: BREAST CANCER
     Dosage: 250 MG DAILY PO
     Route: 048
     Dates: start: 20040216
  2. DOCETAXEL [Suspect]
     Indication: BREAST CANCER
     Dosage: 100 MG/M2 WEEK IV
     Route: 042
     Dates: start: 20040216

REACTIONS (1)
  - ILEUS PARALYTIC [None]
